FAERS Safety Report 14211916 (Version 6)
Quarter: 2018Q1

REPORT INFORMATION
  Report Type: Report from Study
  Country: US (occurrence: US)
  Receive Date: 20171122
  Receipt Date: 20180305
  Transmission Date: 20180508
  Serious: Yes (Hospitalization, Other)
  Sender: FDA-Public Use
  Company Number: US-JNJFOC-20170915799

PATIENT
  Age: 69 Year
  Sex: Female

DRUGS (16)
  1. FLAXSEED [Concomitant]
     Active Substance: FLAX SEED
  2. ALLOPURINOL. [Concomitant]
     Active Substance: ALLOPURINOL
     Indication: RENAL DISORDER
  3. BABY ASPIRIN [Concomitant]
     Active Substance: ASPIRIN
     Dosage: 0.5 DF
     Route: 048
  4. VITAMINS NOS [Concomitant]
     Active Substance: VITAMINS
  5. FISH OIL [Concomitant]
     Active Substance: FISH OIL
  6. PRADAXA [Concomitant]
     Active Substance: DABIGATRAN ETEXILATE MESYLATE
  7. IMBRUVICA [Suspect]
     Active Substance: IBRUTINIB
     Indication: CHRONIC LYMPHOCYTIC LEUKAEMIA
     Route: 048
     Dates: start: 20171116
  8. VITAMIN D3 [Concomitant]
     Active Substance: CHOLECALCIFEROL
     Dosage: 10000 UNIT
  9. IMBRUVICA [Suspect]
     Active Substance: IBRUTINIB
     Indication: CHRONIC LYMPHOCYTIC LEUKAEMIA
     Route: 048
     Dates: start: 20170907, end: 20171115
  10. AUGMENTIN [Concomitant]
     Active Substance: AMOXICILLIN\CLAVULANATE POTASSIUM
     Dosage: 875-125 MG
  11. CHOLEST OFF NATURE MADE [Concomitant]
  12. COENZYME Q10 [Concomitant]
     Active Substance: UBIDECARENONE
     Route: 048
  13. PANTOPRAZOLE SODIUM. [Concomitant]
     Active Substance: PANTOPRAZOLE SODIUM
  14. ZETIA [Concomitant]
     Active Substance: EZETIMIBE
  15. IMBRUVICA [Suspect]
     Active Substance: IBRUTINIB
     Indication: CHRONIC LYMPHOCYTIC LEUKAEMIA
     Route: 048
     Dates: start: 20170905
  16. KRILL OIL [Concomitant]
     Active Substance: DIETARY SUPPLEMENT

REACTIONS (16)
  - Biopsy lung [Unknown]
  - Ulcer [Unknown]
  - White blood cell count decreased [Recovered/Resolved]
  - Bite [Unknown]
  - Lymph gland infection [Unknown]
  - Hypertension [Recovering/Resolving]
  - Thrombosis [Unknown]
  - Faeces hard [Unknown]
  - Red blood cell count decreased [Unknown]
  - Cellulitis [Unknown]
  - Tooth extraction [Unknown]
  - Asthenia [Unknown]
  - Post procedural haemorrhage [Not Recovered/Not Resolved]
  - Skin fissures [Recovering/Resolving]
  - Diarrhoea [Recovered/Resolved]
  - White blood cell count abnormal [Unknown]

NARRATIVE: CASE EVENT DATE: 20170908
